FAERS Safety Report 5189434-8 (Version None)
Quarter: 2006Q4

REPORT INFORMATION
  Report Type: 
  Country: None (occurrence: None)
  Receive Date: 20061215
  Receipt Date: 20061205
  Transmission Date: 20070319
  Serious: Yes (Disabling, Other)
  Sender: FDA-Public Use
  Company Number: 2006150625

PATIENT
  Age: 58 Year
  Sex: Female

DRUGS (12)
  1. LYRICA [Suspect]
     Indication: NEUROPATHY
     Dates: start: 20060101, end: 20060101
  2. OXYCONTIN [Concomitant]
  3. ATIVAN [Concomitant]
  4. CYMBALTA [Concomitant]
  5. PREDNISONE TAB [Concomitant]
  6. LISINOPRIL (LISNOPRL) [Concomitant]
  7. FLEXERIL [Concomitant]
  8. POTASSIUM (POTASSIUM) [Concomitant]
  9. ZANAFLEX [Concomitant]
  10. LEVSIN (HYOSCYAMINE SULFATE) [Concomitant]
  11. LOMOTIL [Concomitant]
  12. INSULIN [Concomitant]

REACTIONS (7)
  - ABASIA [None]
  - ASTHENIA [None]
  - HYPOAESTHESIA [None]
  - OEDEMA PERIPHERAL [None]
  - PAIN [None]
  - WEIGHT INCREASED [None]
  - WOUND SECRETION [None]
